FAERS Safety Report 8452065-8 (Version None)
Quarter: 2012Q2

REPORT INFORMATION
  Report Type: 
  Country: None (occurrence: None)
  Receive Date: 20120620
  Receipt Date: 20120613
  Transmission Date: 20120825
  Serious: Yes (Other)
  Sender: FDA-Public Use
  Company Number: US-ROCHE-783642

PATIENT
  Sex: Female
  Weight: 60.382 kg

DRUGS (7)
  1. ACCUTANE [Suspect]
     Route: 065
     Dates: start: 19980601, end: 19981223
  2. ACETAMINOPHEN [Concomitant]
  3. ACCUTANE [Suspect]
     Route: 065
     Dates: start: 19970523, end: 19971101
  4. ACCUTANE [Suspect]
     Indication: ACNE
     Route: 065
     Dates: start: 19950811, end: 19960201
  5. ACCUTANE [Suspect]
     Route: 065
     Dates: start: 20001001, end: 20010501
  6. IBUPROFEN (ADVIL) [Concomitant]
  7. ACCUTANE [Suspect]
     Route: 065
     Dates: start: 20020805, end: 20030501

REACTIONS (7)
  - BLOOD TRIGLYCERIDES INCREASED [None]
  - COLITIS ULCERATIVE [None]
  - COLONIC POLYP [None]
  - LIP DRY [None]
  - ANXIETY [None]
  - INFLAMMATORY BOWEL DISEASE [None]
  - BLOOD CHOLESTEROL INCREASED [None]
